FAERS Safety Report 10100406 (Version 2)
Quarter: 2014Q2

REPORT INFORMATION
  Report Type: Spontaneous
  Country: US (occurrence: US)
  Receive Date: 20140423
  Receipt Date: 20140423
  Transmission Date: 20141212
  Serious: No
  Sender: FDA-Public Use
  Company Number: US-MYLANLABS-2013S1010062

PATIENT
  Age: 58 Year
  Sex: Male

DRUGS (1)
  1. ALFUZOSIN HYDROCHLORIDE EXTENDED-RELEASE TABLETS [Suspect]
     Dates: start: 20130225

REACTIONS (1)
  - Migraine with aura [Not Recovered/Not Resolved]
